FAERS Safety Report 7742168-5 (Version None)
Quarter: 2011Q3

REPORT INFORMATION
  Report Type: 
  Country: None (occurrence: None)
  Receive Date: 20110912
  Receipt Date: 20110831
  Transmission Date: 20111222
  Serious: Yes (Other)
  Sender: FDA-Public Use
  Company Number: AR-JNJFOC-20110903328

PATIENT
  Age: 6 Year
  Sex: Female

DRUGS (1)
  1. TOPIRAMATE [Suspect]
     Indication: GRAND MAL CONVULSION
     Route: 048

REACTIONS (4)
  - MYOCLONUS [None]
  - TONIC CONVULSION [None]
  - DISTURBANCE IN ATTENTION [None]
  - AGGRESSION [None]
